FAERS Safety Report 8453940-0 (Version None)
Quarter: 2012Q2

REPORT INFORMATION
  Report Type: 
  Country: None (occurrence: None)
  Receive Date: 20120323
  Receipt Date: 20110915
  Transmission Date: 20120825
  Serious: Yes (Hospitalization)
  Sender: FDA-Public Use
  Company Number: 163-21880-11092021

PATIENT
  Age: 67 Year
  Sex: Male
  Weight: 102.9665 kg

DRUGS (13)
  1. LEVOTHYROXINE [Concomitant]
  2. LENALIDOMIDE [Suspect]
     Indication: MULTIPLE MYELOMA
     Dosage: 5 MG, X 21D, PO
     Route: 048
     Dates: start: 20110714
  3. CRESTOR [Concomitant]
  4. TOPROL-XL [Concomitant]
  5. FLUCONAZOLE [Concomitant]
  6. TORSEMIDE [Concomitant]
  7. VELCADE [Concomitant]
  8. ALOXI [Concomitant]
  9. ZOFRAN [Concomitant]
  10. DECADRON [Concomitant]
  11. COMPAZINE [Concomitant]
  12. ACYCLOVIR [Concomitant]
  13. LEXAPRO [Concomitant]

REACTIONS (1)
  - THROMBOPHLEBITIS SUPERFICIAL [None]
